FAERS Safety Report 4507321-2 (Version None)
Quarter: 2004Q4

REPORT INFORMATION
  Report Type: 
  Country: None (occurrence: None)
  Receive Date: 20041025
  Receipt Date: 20040726
  Transmission Date: 20050328
  Serious: Yes (Hospitalization)
  Sender: FDA-Public Use
  Company Number: US-JNJFOC-20040707041

PATIENT
  Age: 78 Year
  Sex: Female

DRUGS (13)
  1. INFLIXIMAB (INFLIXIMAB, RECOMBINANT) LYOPHILIZED POWDER [Suspect]
     Indication: RHEUMATOID ARTHRITIS
     Dosage: INTRAVENOUS
     Route: 042
     Dates: start: 20010710, end: 20030601
  2. ASPIRIN [Concomitant]
  3. CALTRATE (CALCIUM CARBONATE) [Concomitant]
  4. DIOVAN [Concomitant]
  5. FOLIC ACID [Concomitant]
  6. IRON SUPPLEMENT (IRON) [Concomitant]
  7. METHOTREXATE [Concomitant]
  8. NORVASC [Concomitant]
  9. PREDNISONE [Concomitant]
  10. ZOCOR [Concomitant]
  11. ZOCOR [Concomitant]
  12. GLUCOSAMINE/CHONDROITIN (GLUCOSAMINE WCHONDROITIN SULFATES) [Concomitant]
  13. MULTIVITAMIN [Concomitant]

REACTIONS (1)
  - PNEUMONIA [None]
